FAERS Safety Report 9042173 (Version 1)
Quarter: 2013Q1

REPORT INFORMATION
  Report Type: Report from Study
  Country: US (occurrence: US)
  Receive Date: 20130129
  Receipt Date: 20130129
  Transmission Date: 20140127
  Serious: No
  Sender: FDA-Public Use
  Company Number: US-ABBOTT-12P-163-0909002-00

PATIENT
  Age: 60 Year
  Sex: Female

DRUGS (9)
  1. HUMIRA 40 MG/0.8 ML PEN [Suspect]
     Indication: RHEUMATOID ARTHRITIS
     Route: 058
     Dates: start: 201102
  2. DITROPAN [Concomitant]
     Indication: URINARY INCONTINENCE
  3. PREDNISONE [Concomitant]
     Indication: RHEUMATOID ARTHRITIS
     Dosage: 10 MG EVERY DAY
  4. INDOMETHACIN [Concomitant]
     Indication: RHEUMATOID ARTHRITIS
  5. JANUVIA [Concomitant]
     Indication: TYPE 2 DIABETES MELLITUS
     Dosage: 100 MG EVERY DAY
  6. MORPHINE SULPHATE [Concomitant]
     Indication: PAIN
  7. MORPHINE SULPHATE [Concomitant]
     Dosage: N LATE EVENING AS REQUIRED
  8. PERCOCET [Concomitant]
     Indication: PAIN
     Dosage: 10/325 MG THREE TIMES DAILY AS REQUIRED
  9. PRISTIQ [Concomitant]
     Indication: DEPRESSION
     Dosage: 50 MG EVERY DAY

REACTIONS (6)
  - Rheumatoid arthritis [Not Recovered/Not Resolved]
  - Pain [Unknown]
  - Musculoskeletal stiffness [Unknown]
  - Rheumatoid arthritis [Unknown]
  - Cataract operation [Unknown]
  - Cataract operation [Unknown]
